FAERS Safety Report 8817770 (Version 6)
Quarter: 2014Q1

REPORT INFORMATION
  Report Type: Report from Study
  Country: JP (occurrence: JP)
  Receive Date: 20121001
  Receipt Date: 20140321
  Transmission Date: 20141002
  Serious: Yes (Hospitalization)
  Sender: FDA-Public Use
  Company Number: PHHY2012JP085135

PATIENT
  Age: 46 Year
  Sex: Male

DRUGS (7)
  1. FTY 720 [Suspect]
     Indication: MULTIPLE SCLEROSIS
     Dosage: 0.5 MG, QD
     Route: 048
     Dates: start: 20120706, end: 20120920
  2. OMEPRAL [Concomitant]
     Dosage: 10 MG, UNK
     Dates: start: 20110818
  3. ONEALFA [Concomitant]
     Dosage: 0.5 UG, UNK
     Route: 048
     Dates: start: 20110818
  4. CALCIUM LACTATE [Concomitant]
     Dosage: 3 G, UNK
     Route: 048
     Dates: start: 20110818
  5. MYSLEE [Concomitant]
     Dosage: 5 MG, UNK
     Route: 048
     Dates: start: 20110901
  6. LOXONIN [Concomitant]
     Dosage: 180 MG, UNK
     Route: 048
     Dates: start: 20120719
  7. MUCOSTA [Concomitant]
     Dosage: 300 MG, UNK
     Route: 048
     Dates: start: 20120719

REACTIONS (3)
  - Pyrexia [Recovering/Resolving]
  - Rash [Recovering/Resolving]
  - Visual field defect [Recovering/Resolving]
